FAERS Safety Report 7255399-8 (Version None)
Quarter: 2011Q1

REPORT INFORMATION
  Report Type: 
  Country: None (occurrence: None)
  Receive Date: 20110129
  Receipt Date: 20100412
  Transmission Date: 20110831
  Serious: No
  Sender: FDA-Public Use
  Company Number: US-ABBOTT-10P-163-0637878-00

PATIENT
  Sex: Female

DRUGS (3)
  1. HUMIRA [Suspect]
     Dates: start: 20091001, end: 20100101
  2. HUMIRA [Suspect]
     Indication: PSORIATIC ARTHROPATHY
     Dates: start: 20090630, end: 20091001
  3. HUMIRA [Suspect]
     Dates: start: 20100201

REACTIONS (1)
  - HEPATIC ENZYME INCREASED [None]
